FAERS Safety Report 11712284 (Version 1)
Quarter: 2015Q4

REPORT INFORMATION
  Report Type: Spontaneous
  Country: US (occurrence: US)
  Receive Date: 20151104
  Receipt Date: 20151104
  Transmission Date: 20160304
  Serious: No
  Sender: FDA-Public Use
  Company Number: US-ELI_LILLY_AND_COMPANY-US201105003350

PATIENT
  Age: 84 Year
  Sex: Female

DRUGS (1)
  1. FORTEO [Suspect]
     Active Substance: TERIPARATIDE
     Indication: OSTEOPOROSIS
     Dosage: 20 UG, DAILY(1/D)
     Dates: start: 20110502, end: 20110604

REACTIONS (6)
  - Pain in jaw [Recovered/Resolved]
  - Toothache [Recovered/Resolved]
  - Chest discomfort [Recovered/Resolved]
  - Chest pain [Unknown]
  - Dyspnoea [Recovered/Resolved]
  - Oral pain [Unknown]

NARRATIVE: CASE EVENT DATE: 20110505
